FAERS Safety Report 8371377-X (Version None)
Quarter: 2012Q2

REPORT INFORMATION
  Report Type: 
  Country: None (occurrence: None)
  Receive Date: 20120518
  Receipt Date: 20120511
  Transmission Date: 20120825
  Serious: Yes (Hospitalization)
  Sender: FDA-Public Use
  Company Number: ES-B.I. PHARMACEUTICALS,INC./RIDGEFIELD-2012-ES-00210ES

PATIENT
  Age: 70 Year
  Sex: Female

DRUGS (7)
  1. PREDNISONE [Concomitant]
  2. OMEPRAZOLE [Concomitant]
  3. ASPIRIN [Suspect]
     Route: 048
     Dates: start: 20110201
  4. FUROSEMIDE [Concomitant]
  5. PRAVASTATINA [Concomitant]
  6. TELMISARTAN AND HYDROCHLOROTHIAZIDE [Concomitant]
     Dosage: 40 MG / 12,5 MG
  7. PRADAXA [Suspect]
     Indication: ATRIAL FIBRILLATION
     Dosage: 220 MG
     Route: 048
     Dates: start: 20120201, end: 20120401

REACTIONS (3)
  - RECTAL HAEMORRHAGE [None]
  - COLITIS [None]
  - DRUG INTERACTION [None]
